FAERS Safety Report 22072356 (Version 2)
Quarter: 2023Q1

REPORT INFORMATION
  Report Type: Spontaneous
  Country: AU (occurrence: None)
  Receive Date: 20230308
  Receipt Date: 20230309
  Transmission Date: 20230418
  Serious: Yes (Hospitalization, Other)
  Sender: FDA-Public Use
  Company Number: AU-Orion Corporation ORION PHARMA-ENTC2023-0046

PATIENT
  Age: 52 Year
  Sex: Male

DRUGS (15)
  1. CARBIDOPA\ENTACAPONE\LEVODOPA [Suspect]
     Active Substance: CARBIDOPA\ENTACAPONE\LEVODOPA
     Indication: Parkinson^s disease
     Dosage: LEVODOPA EQUIVALENT DAILY DOSE (LEDD) OF 1375 MG 2-3 HOURLY DAYTIME
     Route: 065
     Dates: start: 2020
  2. CARBIDOPA\ENTACAPONE\LEVODOPA [Suspect]
     Active Substance: CARBIDOPA\ENTACAPONE\LEVODOPA
     Dosage: DOSE REDUCED
     Route: 065
  3. CARBIDOPA\ENTACAPONE\LEVODOPA [Suspect]
     Active Substance: CARBIDOPA\ENTACAPONE\LEVODOPA
     Dosage: 450 MG LEDD
     Route: 065
  4. CARBIDOPA\ENTACAPONE\LEVODOPA [Suspect]
     Active Substance: CARBIDOPA\ENTACAPONE\LEVODOPA
     Dosage: 425 MG LEDD
     Route: 065
  5. SELEGILINE [Suspect]
     Active Substance: SELEGILINE
     Indication: Parkinson^s disease
     Route: 065
     Dates: start: 2020
  6. SELEGILINE [Suspect]
     Active Substance: SELEGILINE
     Dosage: DOSE REDUCED
     Route: 065
  7. PRAMIPEXOLE [Suspect]
     Active Substance: PRAMIPEXOLE
     Indication: Parkinson^s disease
     Route: 065
  8. PRAMIPEXOLE [Suspect]
     Active Substance: PRAMIPEXOLE
     Dosage: DOSE REDUCED
     Route: 065
  9. PRAMIPEXOLE [Suspect]
     Active Substance: PRAMIPEXOLE
     Route: 065
     Dates: start: 2020
  10. PRAMIPEXOLE [Suspect]
     Active Substance: PRAMIPEXOLE
     Route: 065
  11. AMANTADINE [Suspect]
     Active Substance: AMANTADINE
     Indication: Parkinson^s disease
     Route: 065
     Dates: start: 2020
  12. AMANTADINE [Suspect]
     Active Substance: AMANTADINE
     Dosage: DOSE REDUCED
     Route: 065
  13. LEVODOPA [Suspect]
     Active Substance: LEVODOPA
     Indication: Parkinson^s disease
     Dosage: 1375 MG 2-3 HOURLY DAYTIME
     Route: 065
     Dates: start: 2020
  14. LEVODOPA [Suspect]
     Active Substance: LEVODOPA
     Dosage: DOSE REDUCED; 450 MG (LEDD);
     Route: 065
  15. LEVODOPA [Suspect]
     Active Substance: LEVODOPA
     Dosage: RE-INTRODUCED?450 MG (LEDD);
     Route: 065

REACTIONS (5)
  - Drug ineffective [Unknown]
  - Bradykinesia [Unknown]
  - Gait disturbance [Recovering/Resolving]
  - Dysarthria [Recovered/Resolved]
  - Dyskinesia [Unknown]

NARRATIVE: CASE EVENT DATE: 20200101
